FAERS Safety Report 17661139 (Version 2)
Quarter: 2020Q2

REPORT INFORMATION
  Report Type: Report from Study
  Country: US (occurrence: US)
  Receive Date: 20200413
  Receipt Date: 20200528
  Transmission Date: 20200713
  Serious: Yes (Other)
  Sender: FDA-Public Use
  Company Number: US-SA-2020SA088888

PATIENT
  Age: 33 Year
  Sex: Male

DRUGS (1)
  1. DUPILUMAB [Suspect]
     Active Substance: DUPILUMAB
     Indication: DERMATITIS ATOPIC
     Dosage: 300 MG, QOW
     Route: 058
     Dates: start: 202001

REACTIONS (3)
  - COVID-19 [Unknown]
  - Photophobia [Unknown]
  - Lacrimation increased [Unknown]

NARRATIVE: CASE EVENT DATE: 2020
